FAERS Safety Report 13026176 (Version 1)
Quarter: 2016Q4

REPORT INFORMATION
  Report Type: Spontaneous
  Country: US (occurrence: US)
  Receive Date: 20161214
  Receipt Date: 20161214
  Transmission Date: 20170207
  Serious: Yes (Disabling, Other)
  Sender: FDA-Public Use
  Company Number: US-GLENMARK PHARMACEUTICALS INC, USA.-2016GMK025356

PATIENT
  Age: 48 Year
  Sex: Male

DRUGS (2)
  1. BETAMETHASONE DIPROPIONATE. [Suspect]
     Active Substance: BETAMETHASONE DIPROPIONATE
     Indication: PAIN MANAGEMENT
     Dosage: 12 MG (2 ML) SOLUTION FOR INJECTION, UNK
     Route: 065
  2. BUPIVACAINE. [Concomitant]
     Active Substance: BUPIVACAINE
     Indication: PAIN MANAGEMENT
     Dosage: 4 ML, SUSPENSION FOR INJECTION
     Route: 065

REACTIONS (3)
  - Paraparesis [Recovering/Resolving]
  - Urinary retention [Recovering/Resolving]
  - Sensory loss [Recovering/Resolving]
